FAERS Safety Report 12314293 (Version 3)
Quarter: 2016Q3

REPORT INFORMATION
  Report Type: Spontaneous
  Country: US (occurrence: US)
  Receive Date: 20160428
  Receipt Date: 20160817
  Transmission Date: 20161109
  Serious: Yes (Hospitalization, Other)
  Sender: FDA-Public Use
  Company Number: PHEH2016US010044

PATIENT
  Age: 68 Year
  Sex: Male
  Weight: 84 kg

DRUGS (9)
  1. ENTRESTO [Suspect]
     Active Substance: SACUBITRIL\VALSARTAN
     Indication: ISCHAEMIC CARDIOMYOPATHY
     Dosage: 49/51 MG, BID
     Route: 048
     Dates: start: 20160321, end: 20160331
  2. ALDACTONE [Concomitant]
     Active Substance: SPIRONOLACTONE
     Indication: PRODUCT USED FOR UNKNOWN INDICATION
     Route: 065
  3. LASIX [Concomitant]
     Active Substance: FUROSEMIDE
     Indication: CARDIAC FAILURE CHRONIC
     Dosage: 20 UNK, QD
     Route: 048
  4. ENTRESTO [Suspect]
     Active Substance: SACUBITRIL\VALSARTAN
     Indication: CARDIAC FAILURE CHRONIC
     Dosage: 24/26 MG, BID
     Route: 048
     Dates: start: 20160224, end: 20160321
  5. CRESTOR [Concomitant]
     Active Substance: ROSUVASTATIN CALCIUM
     Indication: CORONARY ARTERY DISEASE
     Dosage: 40 UNK, QD
     Route: 048
     Dates: start: 20091022
  6. ASPIRIN                            /00346701/ [Concomitant]
     Active Substance: ASCORBIC ACID\ASPIRIN
     Indication: CORONARY ARTERY DISEASE
     Dosage: 81 UNK, QD
     Route: 065
  7. TICAGRELOR [Concomitant]
     Active Substance: TICAGRELOR
     Indication: CORONARY ARTERY DISEASE
     Dosage: 90 UNK, BID
     Route: 048
  8. COREG [Concomitant]
     Active Substance: CARVEDILOL
     Indication: CARDIAC FAILURE CHRONIC
     Dosage: 6.25 UNK, BID
     Route: 048
     Dates: start: 20041210
  9. VITAMIN D3 [Concomitant]
     Active Substance: CHOLECALCIFEROL
     Indication: PRODUCT USED FOR UNKNOWN INDICATION
     Route: 065

REACTIONS (32)
  - Platelet count decreased [Unknown]
  - Prothrombin time prolonged [Unknown]
  - Activated partial thromboplastin time prolonged [Unknown]
  - Calcium ionised decreased [Unknown]
  - Red cell distribution width increased [Unknown]
  - International normalised ratio increased [Unknown]
  - Blood bilirubin increased [Unknown]
  - Dizziness [Unknown]
  - Acute kidney injury [Recovered/Resolved]
  - Fall [Unknown]
  - White blood cell count increased [Unknown]
  - Blood phosphorus increased [Unknown]
  - Vomiting [Unknown]
  - Alanine aminotransferase increased [Unknown]
  - Hypophagia [Unknown]
  - Brain natriuretic peptide increased [Unknown]
  - Mean platelet volume increased [Unknown]
  - Red blood cell count decreased [Unknown]
  - Bilirubin conjugated increased [Unknown]
  - Aspartate aminotransferase increased [Unknown]
  - Blood glucose increased [Unknown]
  - Blood sodium decreased [Unknown]
  - Nausea [Unknown]
  - Blood pressure systolic decreased [Unknown]
  - Haematocrit decreased [Unknown]
  - Blood alkaline phosphatase increased [Unknown]
  - Mean cell haemoglobin concentration increased [Unknown]
  - Protein total decreased [Unknown]
  - Eye contusion [Unknown]
  - Haemoglobin decreased [Unknown]
  - Blood calcium decreased [Unknown]
  - Globulins decreased [Unknown]

NARRATIVE: CASE EVENT DATE: 20160323
